FAERS Safety Report 16021431 (Version 5)
Quarter: 2022Q3

REPORT INFORMATION
  Report Type: Report from Study
  Country: US (occurrence: None)
  Receive Date: 20190301
  Receipt Date: 20220718
  Transmission Date: 20221027
  Serious: Yes (Hospitalization, Congenital Anomaly, Other)
  Sender: FDA-Public Use
  Company Number: US-ROCHE-2269327

PATIENT
  Age: 67 Year
  Sex: Female

DRUGS (15)
  1. PIRFENIDONE [Suspect]
     Active Substance: PIRFENIDONE
     Indication: Product used for unknown indication
     Route: 065
     Dates: end: 20180716
  2. MYCOPHENOLATE MOFETIL [Suspect]
     Active Substance: MYCOPHENOLATE MOFETIL
     Indication: Systemic sclerosis pulmonary
     Dosage: (5 CAPSULES)
     Route: 048
     Dates: start: 20180523
  3. GUAIFENESIN [Concomitant]
     Active Substance: GUAIFENESIN
  4. LORATADINE [Concomitant]
     Active Substance: LORATADINE
  5. FIBER [Concomitant]
     Active Substance: PSYLLIUM HUSK
  6. PREDNISONE [Concomitant]
     Active Substance: PREDNISONE
  7. RANITIDINE [Concomitant]
     Active Substance: RANITIDINE
  8. ONDANSETRON [Concomitant]
     Active Substance: ONDANSETRON
  9. BUPROPION [Concomitant]
     Active Substance: BUPROPION
  10. DIAZEPAM [Concomitant]
     Active Substance: DIAZEPAM
  11. ESOMEPRAZOLE MAGNESIUM [Concomitant]
     Active Substance: ESOMEPRAZOLE MAGNESIUM
  12. MIRTAZAPINE [Concomitant]
     Active Substance: MIRTAZAPINE
  13. DULOXETINE [Concomitant]
     Active Substance: DULOXETINE
  14. OXYGEN [Concomitant]
     Active Substance: OXYGEN
  15. HYDROCODONE [Concomitant]
     Active Substance: HYDROCODONE

REACTIONS (5)
  - Pleural effusion [Recovering/Resolving]
  - Dyspnoea [Recovered/Resolved with Sequelae]
  - Pulmonary embolism [Unknown]
  - Pneumonia aspiration [Unknown]
  - Chest pain [Recovered/Resolved with Sequelae]

NARRATIVE: CASE EVENT DATE: 20190121
